FAERS Safety Report 20899208 (Version 1)
Quarter: 2022Q2

REPORT INFORMATION
  Report Type: Spontaneous
  Country: RU (occurrence: RU)
  Receive Date: 20220601
  Receipt Date: 20220601
  Transmission Date: 20220720
  Serious: Yes (Other)
  Sender: FDA-Public Use
  Company Number: RU-GALDERMA-RU2022007175

PATIENT

DRUGS (5)
  1. ADAPALENE\BENZOYL PEROXIDE [Suspect]
     Active Substance: ADAPALENE\BENZOYL PEROXIDE
     Indication: Acne
     Dosage: UNK
     Route: 061
  2. DOXYCYCLINE [Suspect]
     Active Substance: DOXYCYCLINE
     Indication: Acne
     Dosage: UNK
     Route: 048
  3. ISOTRETINOIN [Concomitant]
     Active Substance: ISOTRETINOIN
     Indication: Acne fulminans
     Dosage: 16 MILLIGRAM
     Route: 065
  4. ISOTRETINOIN [Concomitant]
     Active Substance: ISOTRETINOIN
     Dosage: 32 MILLIGRAM, QD
     Route: 065
  5. ISOTRETINOIN [Concomitant]
     Active Substance: ISOTRETINOIN
     Dosage: 48 MILLIGRAM, QD
     Route: 065

REACTIONS (12)
  - Acne fulminans [Recovered/Resolved]
  - Pyrexia [Recovered/Resolved]
  - Arthralgia [Recovered/Resolved]
  - Pustule [Recovered/Resolved]
  - Purulent discharge [Recovered/Resolved]
  - Scab [Recovered/Resolved]
  - Scar [Not Recovered/Not Resolved]
  - Dry skin [Recovered/Resolved]
  - Mucosal dryness [Recovered/Resolved]
  - Nasal dryness [Recovered/Resolved]
  - Dry eye [Recovered/Resolved]
  - Drug ineffective [Unknown]
